FAERS Safety Report 9633405 (Version 1)
Quarter: 2013Q4

REPORT INFORMATION
  Report Type: Spontaneous
  Country: US (occurrence: None)
  Receive Date: 20131018
  Receipt Date: 20131018
  Transmission Date: 20140711
  Serious: No
  Sender: FDA-Public Use
  Company Number: None

PATIENT
  Age: 56 Year
  Sex: Female
  Weight: 59.88 kg

DRUGS (6)
  1. ATORVASTATIN [Suspect]
     Indication: HYPERCHOLESTEROLAEMIA
     Route: 048
     Dates: start: 20131007, end: 20131007
  2. ATORVASTATIN [Concomitant]
  3. RESTASIS EYE DROPS [Concomitant]
  4. VIT D [Concomitant]
  5. ASA [Concomitant]
  6. CALCIUM SUPPLEMENT [Concomitant]

REACTIONS (5)
  - Impaired driving ability [None]
  - Dizziness [None]
  - Disorientation [None]
  - Headache [None]
  - Abasia [None]
